FAERS Safety Report 10165944 (Version 3)
Quarter: 2015Q1

REPORT INFORMATION
  Report Type: Spontaneous
  Country: US (occurrence: US)
  Receive Date: 20140510
  Receipt Date: 20140510
  Transmission Date: 20150720
  Serious: Yes (Other)
  Sender: FDA-Public Use
  Company Number: US-MYLANLABS-2014S1010122

PATIENT
  Age: 56 Year
  Sex: Female

DRUGS (3)
  1. HYDROXYCHLOROQUINE [Suspect]
     Active Substance: HYDROXYCHLOROQUINE
     Indication: RHEUMATOID ARTHRITIS
     Dosage: 400MG DAILY
     Route: 065
  2. IBUPROFEN. [Interacting]
     Active Substance: IBUPROFEN
     Route: 065
  3. NABUMETONE. [Interacting]
     Active Substance: NABUMETONE
     Route: 065

REACTIONS (4)
  - Toxicity to various agents [Unknown]
  - Retinopathy [Unknown]
  - Drug interaction [Unknown]
  - Overdose [Unknown]
